FAERS Safety Report 7153954-7 (Version None)
Quarter: 2010Q4

REPORT INFORMATION
  Report Type: 
  Country: None (occurrence: None)
  Receive Date: 20101213
  Receipt Date: 20101202
  Transmission Date: 20110411
  Serious: Yes (Life-Threatening, Hospitalization, Disabling)
  Sender: FDA-Public Use
  Company Number: US-JNJFOC-20101101010

PATIENT
  Sex: Male
  Weight: 65.9 kg

DRUGS (8)
  1. USTEKINUMAB [Suspect]
     Indication: PSORIASIS
     Route: 058
  2. USTEKINUMAB [Suspect]
     Route: 058
  3. PLACEBO [Suspect]
     Indication: PSORIASIS
     Route: 058
  4. PLACEBO [Suspect]
     Route: 058
  5. FENOPROFEN CALCIUM [Concomitant]
     Route: 048
  6. AMOXICILLIN [Concomitant]
     Route: 048
  7. BENADRYL [Concomitant]
     Route: 048
  8. ASPIRIN [Concomitant]
     Route: 048

REACTIONS (4)
  - ALCOHOL WITHDRAWAL SYNDROME [None]
  - CONVULSION [None]
  - HYPONATRAEMIA [None]
  - SMALL CELL LUNG CANCER STAGE UNSPECIFIED [None]
